FAERS Safety Report 4476065-8 (Version None)
Quarter: 2004Q3

REPORT INFORMATION
  Report Type: 
  Country: None (occurrence: None)
  Receive Date: 20040923
  Receipt Date: 20040618
  Transmission Date: 20050211
  Serious: No
  Sender: FDA-Public Use
  Company Number: USA040670649

PATIENT
  Age: 71 Year
  Sex: Female

DRUGS (4)
  1. FORTEO [Suspect]
     Indication: OSTEOPOROSIS
     Dates: start: 20040601
  2. ENALAPRIL MALEATE [Concomitant]
  3. CALCIUM CARBONATE [Concomitant]
  4. ESTROGENS CONJUGATED W/MEDROXYPROGESTERONE [Concomitant]

REACTIONS (2)
  - INJECTION SITE ERYTHEMA [None]
  - NERVOUSNESS [None]
